FAERS Safety Report 24063596 (Version 1)
Quarter: 2024Q3

REPORT INFORMATION
  Report Type: Spontaneous
  Country: FR (occurrence: FR)
  Receive Date: 20240709
  Receipt Date: 20240709
  Transmission Date: 20241016
  Serious: Yes (Hospitalization, Other)
  Sender: SANOFI AVENTIS
  Company Number: None

PATIENT
  Age: 37 Year
  Sex: Male

DRUGS (5)
  1. ZOLPIDEM TARTRATE [Suspect]
     Active Substance: ZOLPIDEM TARTRATE
     Dosage: UNK
     Route: 045
  2. COCAINE [Suspect]
     Active Substance: COCAINE
  3. CANNABIS SATIVA SUBSP. INDICA TOP [Suspect]
     Active Substance: CANNABIS SATIVA SUBSP. INDICA TOP
     Dosage: AT LEAST 3 JOINTS A DAY
     Route: 055
  4. TOBACCO LEAF [Suspect]
     Active Substance: TOBACCO LEAF
     Dosage: 10 TO 15 CIGARETTES A DAY
     Route: 055
  5. ALCOHOL [Suspect]
     Active Substance: ALCOHOL
     Dosage: AT LEAST 5-6 BEERS A DAY
     Route: 048

REACTIONS (9)
  - Acute hepatitis C [Not Recovered/Not Resolved]
  - Refusal of treatment by patient [Not Recovered/Not Resolved]
  - Lipase increased [Recovering/Resolving]
  - Pancreatic pseudocyst [Not Recovered/Not Resolved]
  - Nausea [Recovered/Resolved]
  - Vomiting [Recovered/Resolved]
  - Drug abuse [Not Recovered/Not Resolved]
  - Abdominal pain [Recovered/Resolved]
  - Product use issue [Unknown]

NARRATIVE: CASE EVENT DATE: 20220201
